FAERS Safety Report 10376489 (Version 1)
Quarter: 2014Q3

REPORT INFORMATION
  Report Type: Spontaneous
  Country: DE (occurrence: None)
  Receive Date: 20140806
  Receipt Date: 20140806
  Transmission Date: 20150326
  Serious: Yes (Other)
  Sender: FDA-Public Use
  Company Number: AUR-APL-2014-08238

PATIENT
  Age: 80 Year
  Sex: Female
  Weight: 89 kg

DRUGS (9)
  1. METFORMIN [Concomitant]
     Active Substance: METFORMIN HYDROCHLORIDE
  2. ATORVASTATIN CALCIUM (ATORVASTATIN CALCIUM) [Suspect]
     Active Substance: ATORVASTATIN CALCIUM
     Indication: LIPID METABOLISM DISORDER
     Dates: start: 20140703
  3. BENZBROMARONE (BENZBROMARONE) [Concomitant]
  4. EUTHYROX (LEVOTHYROXINE SODIUM) [Concomitant]
  5. CLOPIDOGREL [Suspect]
     Active Substance: CLOPIDOGREL BISULFATE
     Indication: STENT PLACEMENT
     Dates: start: 20140130
  6. CARMEN (LERCANIDIPINE HYDROCHLORIDE) [Concomitant]
  7. MARCUMAR [Concomitant]
     Active Substance: PHENPROCOUMON
  8. SOTALOL (SOTALOL) [Concomitant]
     Active Substance: SOTALOL
  9. TORASEMID (TORASEMIDE) [Concomitant]

REACTIONS (6)
  - Blood glucose increased [None]
  - Asthenia [None]
  - Intestinal obstruction [None]
  - Weight decreased [None]
  - Myalgia [None]
  - Decreased appetite [None]

NARRATIVE: CASE EVENT DATE: 20140705
